FAERS Safety Report 6544064-8 (Version None)
Quarter: 2010Q1

REPORT INFORMATION
  Report Type: 
  Country: None (occurrence: None)
  Receive Date: 20100119
  Receipt Date: 20100119
  Transmission Date: 20100710
  Serious: Yes (Other)
  Sender: FDA-Public Use
  Company Number: None

PATIENT
  Sex: Female
  Weight: 106.5953 kg

DRUGS (2)
  1. ROLAIDS TAB [Suspect]
     Indication: DYSPEPSIA
     Dosage: 2 TABLETS AS NEEDED 2 EACH NIGHT PO
     Route: 048
     Dates: start: 20091227, end: 20100112
  2. TYLENOL (CAPLET) [Suspect]
     Indication: OSTEOARTHRITIS
     Dosage: 2 CAPLETS EVERY 8 HOURS TWICE A DAY PO
     Route: 048
     Dates: start: 20080301, end: 20100112

REACTIONS (7)
  - DEHYDRATION [None]
  - DIARRHOEA [None]
  - GASTROENTERITIS VIRAL [None]
  - LETHARGY [None]
  - MALAISE [None]
  - PRODUCT QUALITY ISSUE [None]
  - VOMITING [None]
